FAERS Safety Report 7962751-1 (Version None)
Quarter: 2011Q4

REPORT INFORMATION
  Report Type: 
  Country: None (occurrence: None)
  Receive Date: 20111207
  Receipt Date: 20111130
  Transmission Date: 20120403
  Serious: Yes (Hospitalization)
  Sender: FDA-Public Use
  Company Number: US-CELGENEUS-163-21880-11120209

PATIENT
  Weight: 82.628 kg

DRUGS (1)
  1. REVLIMID [Suspect]
     Indication: LYMPHATIC SYSTEM NEOPLASM
     Dosage: 5 MILLIGRAM
     Route: 048
     Dates: start: 20100827

REACTIONS (1)
  - GALLBLADDER DISORDER [None]
